FAERS Safety Report 17863956 (Version 1)
Quarter: 2020Q2

REPORT INFORMATION
  Report Type: Spontaneous
  Country: US (occurrence: US)
  Receive Date: 20200605
  Receipt Date: 20200605
  Transmission Date: 20200714
  Serious: Yes (Other)
  Sender: FDA-Public Use
  Company Number: US-TEVA-2020-US-1243501

PATIENT
  Age: 64 Year
  Sex: Female
  Weight: 61.23 kg

DRUGS (2)
  1. XANAX [Concomitant]
     Active Substance: ALPRAZOLAM
     Dosage: AS NEEDED FOR SLEEP
  2. AJOVY [Suspect]
     Active Substance: FREMANEZUMAB-VFRM
     Indication: MIGRAINE
     Dosage: PREFILLED SYRINGE, THERAPY SITE: ABDOMEN
     Route: 065
     Dates: start: 20200501

REACTIONS (9)
  - Electrocardiogram abnormal [Unknown]
  - Nervousness [Unknown]
  - Heart rate increased [Not Recovered/Not Resolved]
  - Chest discomfort [Unknown]
  - Patient dissatisfaction with treatment [Unknown]
  - Blood pressure systolic increased [Unknown]
  - Arthralgia [Not Recovered/Not Resolved]
  - Anxiety [Not Recovered/Not Resolved]
  - Dyspnoea [Unknown]

NARRATIVE: CASE EVENT DATE: 20200519
